FAERS Safety Report 18757149 (Version 1)
Quarter: 2021Q1

REPORT INFORMATION
  Report Type: Spontaneous
  Country: US (occurrence: US)
  Receive Date: 20210119
  Receipt Date: 20210119
  Transmission Date: 20210419
  Serious: Yes (Disabling, Other)
  Sender: FDA-Public Use
  Company Number: US-PURDUE-USA-2020-0198877

PATIENT
  Sex: Female

DRUGS (1)
  1. OXYCONTIN [Suspect]
     Active Substance: OXYCODONE HYDROCHLORIDE
     Indication: PAIN
     Dosage: UNKNOWN
     Route: 048

REACTIONS (7)
  - Spina bifida [Unknown]
  - Gastric dilatation [Unknown]
  - Congenital anomaly [Unknown]
  - Spinal operation [Unknown]
  - Disability [Unknown]
  - Obstructive airways disorder [Unknown]
  - Developmental delay [Unknown]

NARRATIVE: CASE EVENT DATE: 2007
